FAERS Safety Report 12788695 (Version 1)
Quarter: 2016Q3

REPORT INFORMATION
  Report Type: Other
  Country: US (occurrence: US)
  Receive Date: 20160928
  Receipt Date: 20160928
  Transmission Date: 20161109
  Serious: Yes (Other)
  Sender: FDA-Public Use
  Company Number: US-NOVEL LABORATORIES, INC-2016-04345

PATIENT
  Age: 3 Month
  Sex: Male
  Weight: 6.1 kg

DRUGS (6)
  1. LINEZOLID. [Interacting]
     Active Substance: LINEZOLID
     Route: 042
  2. CIPROFLOXACIN. [Concomitant]
     Active Substance: CIPROFLOXACIN
     Route: 065
  3. PIPERACILLIN/TAZOBACTAM [Concomitant]
     Active Substance: PIPERACILLIN SODIUM\TAZOBACTAM SODIUM
     Indication: PNEUMONIA
     Route: 065
  4. DOPAMINE [Interacting]
     Active Substance: DOPAMINE\DOPAMINE HYDROCHLORIDE
     Indication: MEAN ARTERIAL PRESSURE
     Dosage: 6 TO 8 MG/KG/MIN
     Route: 042
  5. LINEZOLID. [Suspect]
     Active Substance: LINEZOLID
     Indication: PNEUMONIA
     Route: 042
  6. CIPROFLOXACIN. [Concomitant]
     Active Substance: CIPROFLOXACIN
     Indication: PNEUMONIA
     Route: 065

REACTIONS (3)
  - Tachycardia [Recovered/Resolved]
  - Drug interaction [Unknown]
  - Hypertension [Recovered/Resolved]
